FAERS Safety Report 4312736-1 (Version None)
Quarter: 2004Q1

REPORT INFORMATION
  Report Type: 
  Country: None (occurrence: None)
  Receive Date: 20040302
  Receipt Date: 20031204
  Transmission Date: 20041129
  Serious: No
  Sender: FDA-Public Use
  Company Number: 701382

PATIENT
  Age: 55 Year
  Sex: Female

DRUGS (2)
  1. AMEVIVE [Suspect]
     Indication: PSORIASIS
     Dosage: 15 MG QW IM
     Route: 030
     Dates: start: 20031113, end: 20031204
  2. DIURETIC [Concomitant]

REACTIONS (3)
  - DERMATITIS [None]
  - OEDEMA PERIPHERAL [None]
  - PRURITUS [None]
